FAERS Safety Report 9325816 (Version 2)
Quarter: 2013Q3

REPORT INFORMATION
  Report Type: Spontaneous
  Country: MX (occurrence: MX)
  Receive Date: 20130604
  Receipt Date: 20130802
  Transmission Date: 20140515
  Serious: Yes (Other)
  Sender: FDA-Public Use
  Company Number: MX-GENZYME-THYM-1003846

PATIENT
  Sex: 0

DRUGS (3)
  1. THYMOGLOBULINE [Suspect]
     Indication: MULTIPLE SCLEROSIS
     Dosage: UNK
     Route: 042
  2. THYMOGLOBULINE [Suspect]
     Indication: APLASTIC ANAEMIA
  3. THYMOGLOBULINE [Suspect]
     Indication: MYELODYSPLASTIC SYNDROME

REACTIONS (1)
  - Drug ineffective for unapproved indication [Unknown]
